FAERS Safety Report 23618644 (Version 1)
Quarter: 2024Q1

REPORT INFORMATION
  Report Type: Spontaneous
  Country: DE (occurrence: DE)
  Receive Date: 20240311
  Receipt Date: 20240311
  Transmission Date: 20240410
  Serious: Yes (Other)
  Sender: FDA-Public Use
  Company Number: DE-PROCTER+GAMBLE-PH24001676

PATIENT
  Age: 73 Year
  Sex: Male

DRUGS (14)
  1. ACETAMINOPHEN [Suspect]
     Active Substance: ACETAMINOPHEN
     Indication: Product used for unknown indication
     Dosage: 3 DOSAGE FORM, QD, 3 TABLETS, 1 ONLY
     Route: 065
     Dates: start: 20240217, end: 20240217
  2. RISPERIDONE [Suspect]
     Active Substance: RISPERIDONE
     Indication: Product used for unknown indication
     Dosage: 1 DOSAGE FORM, QD, 1 TABLET, 1 ONLY
     Route: 065
     Dates: start: 20240217, end: 20240217
  3. CHOLECALCIFEROL [Suspect]
     Active Substance: CHOLECALCIFEROL
     Indication: Product used for unknown indication
     Dosage: 1 DOSAGE FORM, QD, 1 TABLET, 1 ONLY
     Route: 065
     Dates: start: 20240217, end: 20240217
  4. LASIX [Suspect]
     Active Substance: FUROSEMIDE
     Indication: Product used for unknown indication
     Dosage: UNKNOWN QUANTITY OF TABLET(S)
     Route: 065
     Dates: start: 20240217, end: 20240217
  5. FOLIC ACID [Suspect]
     Active Substance: FOLIC ACID
     Indication: Product used for unknown indication
     Dosage: 1 DOSAGE FORM, QD, 1 TABLET, 1 ONLY
     Route: 065
  6. LOPERAMIDE [Suspect]
     Active Substance: LOPERAMIDE
     Indication: Product used for unknown indication
     Dosage: 2 DOSAGE FORM, QD, 2 TABLET, 1 ONLY
     Route: 065
     Dates: start: 20240217, end: 20240217
  7. RAMIPRIL [Suspect]
     Active Substance: RAMIPRIL
     Indication: Product used for unknown indication
     Dosage: 1 DOSAGE FORM, QD, 1 TABLET, 1 ONLY
     Route: 065
     Dates: start: 20240217, end: 20240217
  8. BISACODYL [Suspect]
     Active Substance: BISACODYL
     Indication: Product used for unknown indication
     Dosage: 10 DROPS DAILY(7.5 MG/ML) 10 PICO DROPS, 1 ONLY
     Route: 065
     Dates: start: 20240217, end: 20240217
  9. CYPROTERONE [Suspect]
     Active Substance: CYPROTERONE
     Indication: Product used for unknown indication
     Dosage: 2 DOSAGE FORM, QD, 2 TABLET (2 X 50 MG), 1 ONLY
     Route: 065
     Dates: start: 20240217, end: 20240217
  10. PREDNISOLONE [Suspect]
     Active Substance: PREDNISOLONE
     Indication: Product used for unknown indication
     Dosage: 1 DOSAGE FORM, QD, 1 TABLET, 1 ONLY
     Route: 065
     Dates: start: 20240217, end: 20240217
  11. NOVALGIN (METAMIZOLE SODIUM) [Suspect]
     Active Substance: METAMIZOLE SODIUM
     Indication: Product used for unknown indication
     Dosage: 1 DOSAGE FORM, QD, 1 TABLET (500 MG)
     Route: 065
     Dates: start: 20240217, end: 20240217
  12. FERROUS GLYCINE SULFATE [Suspect]
     Active Substance: FERROUS GLYCINE SULFATE
     Indication: Product used for unknown indication
     Dosage: 1 DOSAGE FORM, QD, 1 TABLET, 1 ONLY
     Route: 065
     Dates: start: 20240217, end: 20240217
  13. TRIUMEQ [Suspect]
     Active Substance: ABACAVIR SULFATE\DOLUTEGRAVIR SODIUM\LAMIVUDINE
     Indication: Product used for unknown indication
     Dosage: 1 DOSAGE FORM, QD, (50 MG/600 MG/300 MG) 1 TABLET, 1 ONLY
     Route: 065
     Dates: start: 20240217, end: 20240217
  14. ASPIRIN [Suspect]
     Active Substance: ASPIRIN
     Indication: Product used for unknown indication
     Dosage: 1 DOSAGE FORM, QD, 1 TABLET, 1 ONLY
     Route: 065
     Dates: start: 20240217, end: 20240217

REACTIONS (7)
  - Hypoxia [Unknown]
  - Tachypnoea [Unknown]
  - Bundle branch block left [Unknown]
  - Exposure via ingestion [Unknown]
  - Hypotension [Unknown]
  - Somnolence [Unknown]
  - Accidental exposure to product [Unknown]

NARRATIVE: CASE EVENT DATE: 20240217
